FAERS Safety Report 5873811-3 (Version None)
Quarter: 2008Q3

REPORT INFORMATION
  Report Type: 
  Country: None (occurrence: None)
  Receive Date: 20080908
  Receipt Date: 20080829
  Transmission Date: 20090109
  Serious: Yes (Hospitalization)
  Sender: FDA-Public Use
  Company Number: US-ROCHE-583570

PATIENT
  Sex: Female
  Weight: 116.1 kg

DRUGS (1)
  1. CAPECITABINE [Suspect]
     Indication: COLORECTAL CANCER
     Dosage: 500 IN AM AND 500 IN PM
     Route: 048
     Dates: start: 20080727

REACTIONS (1)
  - CHOLELITHIASIS [None]
